FAERS Safety Report 8796700 (Version 1)
Quarter: 2012Q4

REPORT INFORMATION
  Report Type: 
  Country: US (occurrence: US)
  Receive Date: 20120917
  Receipt Date: 20120917
  Transmission Date: 20130627
  Serious: Yes (Other)
  Sender: FDA-Public Use
  Company Number: US-ABBOTT-11P-163-0860974-00

PATIENT
  Sex: Male

DRUGS (1)
  1. DEPAKOTE SPRINKLE CAPSULES [Suspect]
     Indication: CONVULSION
     Dosage: 3 tab in am. 4 tabs in pm.
     Dates: start: 2002

REACTIONS (1)
  - Convulsion [Not Recovered/Not Resolved]
